FAERS Safety Report 15554374 (Version 1)
Quarter: 2018Q4

REPORT INFORMATION
  Report Type: Spontaneous
  Country: US (occurrence: US)
  Receive Date: 20181022
  Receipt Date: 20181022
  Transmission Date: 20190205
  Serious: No
  Sender: FDA-Public Use
  Company Number: None

PATIENT
  Age: 65 Year
  Sex: Female
  Weight: 82.1 kg

DRUGS (3)
  1. RITUXAN [Suspect]
     Active Substance: RITUXIMAB
     Dosage: ?          OTHER FREQUENCY:EVERY 6 MONTHS;?
     Dates: start: 201607
  2. RITUXAN [Suspect]
     Active Substance: RITUXIMAB
     Indication: RHEUMATOID ARTHRITIS
     Dosage: ?          OTHER FREQUENCY:DAY 0; THEN EVERY 6 MONTHS?
  3. RITUXAN [Suspect]
     Active Substance: RITUXIMAB
     Dosage: ?          OTHER FREQUENCY:DAY 15;?

REACTIONS (2)
  - Drug effect delayed [None]
  - Drug ineffective [None]
